FAERS Safety Report 12540108 (Version 1)
Quarter: 2016Q3

REPORT INFORMATION
  Report Type: Spontaneous
  Country: US (occurrence: US)
  Receive Date: 20160708
  Receipt Date: 20160708
  Transmission Date: 20161109
  Serious: Yes (Death, Hospitalization, Other)
  Sender: FDA-Public Use
  Company Number: US-GLAXOSMITHKLINE-US2016GSK094362

PATIENT
  Sex: Male

DRUGS (6)
  1. HYDROCHLOROTHIAZIDE. [Suspect]
     Active Substance: HYDROCHLOROTHIAZIDE
  2. HYDRALAZINE [Suspect]
     Active Substance: HYDRALAZINE HYDROCHLORIDE
  3. CARVEDILOL PHOSPHATE. [Suspect]
     Active Substance: CARVEDILOL PHOSPHATE
  4. AMLODIPINE BESYLATE. [Suspect]
     Active Substance: AMLODIPINE BESYLATE
  5. DOXAZOSIN [Suspect]
     Active Substance: DOXAZOSIN\DOXAZOSIN MESYLATE
  6. LISINOPRIL. [Suspect]
     Active Substance: LISINOPRIL

REACTIONS (8)
  - Shock haemorrhagic [Fatal]
  - Acute kidney injury [Fatal]
  - Supraventricular tachycardia [Fatal]
  - Shock [Fatal]
  - Loss of consciousness [Unknown]
  - Cardiomegaly [Fatal]
  - Pulmonary oedema [Fatal]
  - Overdose [Fatal]
